FAERS Safety Report 4402043-0 (Version None)
Quarter: 2004Q3

REPORT INFORMATION
  Report Type: 
  Country: None (occurrence: None)
  Receive Date: 20040720
  Receipt Date: 20040617
  Transmission Date: 20050211
  Serious: Yes (Hospitalization, Other)
  Sender: FDA-Public Use
  Company Number: PHNU2004DE02190

PATIENT
  Age: 52 Year
  Sex: Female
  Weight: 56 kg

DRUGS (11)
  1. LEPONEX / CLOZARIL (CLOZAPINE) [Suspect]
     Indication: SCHIZOPHRENIA, PARANOID TYPE
     Dosage: UP TO 600MG/DAY
     Route: 048
     Dates: end: 20040501
  2. LEPONEX / CLOZARIL (CLOZAPINE) [Suspect]
     Dosage: 400 MG/DAY
     Route: 048
     Dates: start: 20040501, end: 20040601
  3. LEPONEX / CLOZARIL (CLOZAPINE) [Suspect]
     Dosage: 200 MG/DAY
     Route: 048
     Dates: start: 20040601
  4. LEPONEX / CLOZARIL (CLOZAPINE) [Suspect]
     Dosage: UNKNOWN
     Route: 048
     Dates: start: 20040601
  5. SEROQUEL [Concomitant]
     Indication: SCHIZOPHRENIA, PARANOID TYPE
     Dosage: 900 MG/DAY
     Route: 048
  6. DIAZEPAM [Concomitant]
     Dosage: UNKNOWN
     Route: 065
  7. MERIGEST [Concomitant]
     Dosage: 1 MG/DAY
     Route: 048
  8. AKINETON                                /AUS/ [Concomitant]
     Dosage: 2 MG/DAY
     Route: 048
  9. GASTROZEPIN [Concomitant]
     Dosage: 100 MG/DAY
     Route: 048
  10. FERRO SANOL COMP [Concomitant]
     Dosage: UNKNOWN
     Route: 048
  11. NAC ^RATIOPHARM^ [Concomitant]
     Dosage: 600 MG/DAY
     Route: 048

REACTIONS (12)
  - CHRONIC OBSTRUCTIVE AIRWAYS DISEASE EXACERBATED [None]
  - CONDITION AGGRAVATED [None]
  - DIZZINESS [None]
  - DRUG LEVEL ABOVE THERAPEUTIC [None]
  - DRUG LEVEL INCREASED [None]
  - DYSARTHRIA [None]
  - DYSPNOEA AT REST [None]
  - GENERAL PHYSICAL HEALTH DETERIORATION [None]
  - IMMOBILE [None]
  - INFECTION [None]
  - LOBAR PNEUMONIA [None]
  - PNEUMONIA [None]
